FAERS Safety Report 9534650 (Version 2)
Quarter: 2013Q3

REPORT INFORMATION
  Report Type: Spontaneous
  Country: US (occurrence: US)
  Receive Date: 20130918
  Receipt Date: 20130918
  Transmission Date: 20140515
  Serious: No
  Sender: FDA-Public Use
  Company Number: US-PURDUE-USA-2011-0069439

PATIENT
  Age: 88 Year
  Sex: Female
  Weight: 56.69 kg

DRUGS (8)
  1. BUTRANS [Suspect]
     Indication: BACK PAIN
     Dosage: 5 MCG, Q1H
     Route: 062
     Dates: start: 201108
  2. BUTRANS [Suspect]
     Indication: ARTHRALGIA
     Dosage: 10 MCG, Q1H
     Route: 062
  3. BUTRANS [Suspect]
     Dosage: 20 MCG, Q1H
  4. TYLENOL                            /00020001/ [Concomitant]
     Indication: PRODUCT USED FOR UNKNOWN INDICATION
     Dosage: 2-3 TABLETS DAILY
  5. UNSPECIFIED SHOTS IN HIP [Concomitant]
     Indication: PRODUCT USED FOR UNKNOWN INDICATION
  6. THYROID PREPARATIONS [Concomitant]
  7. ANTIHYPERTENSIVES [Concomitant]
  8. METHOCARBAMOL [Concomitant]

REACTIONS (8)
  - Drug withdrawal syndrome [Recovered/Resolved]
  - Blood pressure increased [Unknown]
  - Nausea [Unknown]
  - Constipation [Unknown]
  - Application site pruritus [Not Recovered/Not Resolved]
  - Inadequate analgesia [Unknown]
  - Feeling abnormal [Recovered/Resolved]
  - Wrong technique in drug usage process [Unknown]
